FAERS Safety Report 8182629-0 (Version None)
Quarter: 2012Q1

REPORT INFORMATION
  Report Type: 
  Country: None (occurrence: None)
  Receive Date: 20120301
  Receipt Date: 20120301
  Transmission Date: 20120608
  Serious: Yes (Other)
  Sender: FDA-Public Use
  Company Number: None

PATIENT
  Age: 75 Year
  Sex: Female

DRUGS (1)
  1. PROZAC [Suspect]
     Indication: BIPOLAR DISORDER
     Dosage: 20MG DAILY
     Dates: start: 20120103

REACTIONS (5)
  - MOOD ALTERED [None]
  - HYPERHIDROSIS [None]
  - CHILLS [None]
  - MICTURITION DISORDER [None]
  - NAUSEA [None]
